FAERS Safety Report 5644917-9 (Version None)
Quarter: 2008Q1

REPORT INFORMATION
  Report Type: 
  Country: None (occurrence: None)
  Receive Date: 20080229
  Receipt Date: 20071219
  Transmission Date: 20080703
  Serious: No
  Sender: FDA-Public Use
  Company Number: A0689246A

PATIENT
  Age: 57 Year
  Sex: Male

DRUGS (4)
  1. VALTREX [Suspect]
     Indication: GENITAL HERPES
     Dosage: .5G PER DAY
     Route: 048
     Dates: start: 19950101
  2. NORVASC [Concomitant]
  3. TRILEPTAL [Concomitant]
  4. FLU SHOT [Concomitant]
     Route: 030

REACTIONS (3)
  - HERPES VIRUS INFECTION [None]
  - INCORRECT DOSE ADMINISTERED [None]
  - PHARMACEUTICAL PRODUCT COMPLAINT [None]
